FAERS Safety Report 8364057-8 (Version None)
Quarter: 2012Q2

REPORT INFORMATION
  Report Type: 
  Country: None (occurrence: None)
  Receive Date: 20120514
  Receipt Date: 20120503
  Transmission Date: 20120825
  Serious: Yes (Hospitalization)
  Sender: FDA-Public Use
  Company Number: ACO_30278_2012

PATIENT
  Age: 65 Year
  Sex: Female

DRUGS (2)
  1. AMPYRA [Suspect]
     Indication: PRODUCT USED FOR UNKNOWN INDICATION
     Dosage: 10 MG, Q 12 HRS, ORAL
     Route: 048
     Dates: start: 20120201, end: 20120401
  2. AVONEX [Concomitant]

REACTIONS (2)
  - LOSS OF CONSCIOUSNESS [None]
  - CONVULSION [None]
